FAERS Safety Report 15961903 (Version 2)
Quarter: 2019Q1

REPORT INFORMATION
  Report Type: Spontaneous
  Country: US (occurrence: US)
  Receive Date: 20190214
  Receipt Date: 20190319
  Transmission Date: 20190417
  Serious: No
  Sender: FDA-Public Use
  Company Number: US-GLAXOSMITHKLINE-US2019020846

PATIENT
  Age: 56 Year
  Sex: Male

DRUGS (2)
  1. NICODERM CQ [Suspect]
     Active Substance: NICOTINE
     Indication: SMOKING CESSATION THERAPY
     Dosage: 14 MG, UNK
  2. NICODERM CQ [Suspect]
     Active Substance: NICOTINE
     Indication: SMOKING CESSATION THERAPY
     Dosage: 7 MG, UNK

REACTIONS (4)
  - Agitation [Not Recovered/Not Resolved]
  - Product adhesion issue [Unknown]
  - Nightmare [Not Recovered/Not Resolved]
  - Application site exfoliation [Unknown]
